FAERS Safety Report 22042440 (Version 1)
Quarter: 2023Q1

REPORT INFORMATION
  Report Type: Spontaneous
  Country: IT (occurrence: IT)
  Receive Date: 20230228
  Receipt Date: 20230228
  Transmission Date: 20230417
  Serious: Yes (Other)
  Sender: FDA-Public Use
  Company Number: IT-AUROBINDO-AUR-APL-2023-001822

PATIENT
  Age: 70 Year
  Sex: Male

DRUGS (7)
  1. AMLODIPINE [Suspect]
     Active Substance: AMLODIPINE BESYLATE
     Indication: Raynaud^s phenomenon
     Dosage: 5 MILLIGRAM, ONCE A DAY
     Route: 065
  2. ILOPROST [Suspect]
     Active Substance: ILOPROST
     Indication: Raynaud^s phenomenon
     Dosage: 0.5 NANOGRAM PER KILOGRAM, FOUR TIMES/DAY
     Route: 048
     Dates: start: 2011
  3. ILOPROST [Suspect]
     Active Substance: ILOPROST
     Dosage: 1.62 NANOGRAM PER KILOGRAM, FOUR TIMES/DAY
     Route: 048
     Dates: start: 2015
  4. NIFEDIPINE [Suspect]
     Active Substance: NIFEDIPINE
     Indication: Raynaud^s phenomenon
     Dosage: 30 MILLIGRAM, ONCE A DAY
     Route: 065
     Dates: start: 202009
  5. ILOPROST [Suspect]
     Active Substance: ILOPROST
     Indication: Raynaud^s phenomenon
     Dosage: 10 YEARS OF MONTHLY STABLE VASODILATING THERAPY
     Route: 065
     Dates: start: 202108
  6. ILOPROST [Suspect]
     Active Substance: ILOPROST
     Dosage: 1.3 NANOGRAM PER KILOGRAM
     Route: 065
  7. ILOPROST [Suspect]
     Active Substance: ILOPROST
     Dosage: 1.15 NANOGRAM PER KILOGRAM
     Route: 065

REACTIONS (1)
  - Drug ineffective [Unknown]
